FAERS Safety Report 7631396-5 (Version None)
Quarter: 2011Q3

REPORT INFORMATION
  Report Type: 
  Country: None (occurrence: None)
  Receive Date: 20110725
  Receipt Date: 20110713
  Transmission Date: 20111222
  Serious: Yes (Other)
  Sender: FDA-Public Use
  Company Number: US-JNJFOC-20110706515

PATIENT
  Sex: Female

DRUGS (1)
  1. REMICADE [Suspect]
     Indication: RHEUMATOID ARTHRITIS
     Dosage: THERAPY FOR TEN YEARS
     Route: 042

REACTIONS (2)
  - KNEE ARTHROPLASTY [None]
  - THERAPEUTIC RESPONSE UNEXPECTED [None]
